FAERS Safety Report 16373776 (Version 1)
Quarter: 2019Q2

REPORT INFORMATION
  Report Type: Spontaneous
  Country: US (occurrence: US)
  Receive Date: 20190530
  Receipt Date: 20190530
  Transmission Date: 20190711
  Serious: Yes (Hospitalization)
  Sender: FDA-Public Use
  Company Number: US-TEVA-2019-US-1057135

PATIENT
  Sex: Male

DRUGS (3)
  1. HYDROCODONE W/ACETAMINOPHEN [Suspect]
     Active Substance: ACETAMINOPHEN\HYDROCODONE BITARTRATE
     Route: 048
  2. HYDROCODONE W/IBUPROFEN [Suspect]
     Active Substance: HYDROCODONE\IBUPROFEN
     Route: 048
  3. OXYCONTIN [Suspect]
     Active Substance: OXYCODONE HYDROCHLORIDE
     Route: 048

REACTIONS (7)
  - Coma [Recovering/Resolving]
  - Thinking abnormal [Not Recovered/Not Resolved]
  - Brain oedema [Unknown]
  - Hypopnoea [Unknown]
  - Overdose [Unknown]
  - Motor dysfunction [Not Recovered/Not Resolved]
  - Brain injury [Unknown]
